FAERS Safety Report 8206972-1 (Version None)
Quarter: 2012Q1

REPORT INFORMATION
  Report Type: 
  Country: None (occurrence: None)
  Receive Date: 20120314
  Receipt Date: 20120302
  Transmission Date: 20120608
  Serious: Yes (Life-Threatening, Hospitalization, Other)
  Sender: FDA-Public Use
  Company Number: US-ELI_LILLY_AND_COMPANY-US201105000317

PATIENT
  Sex: Male

DRUGS (22)
  1. COUMADIN [Concomitant]
     Dosage: 2.5 MG, UNK
  2. LOTENSIN [Concomitant]
     Dosage: 5 MG, UNK
     Route: 048
     Dates: end: 20111029
  3. FORTEO [Suspect]
     Dosage: 20 UG, QD
     Route: 065
  4. NEXIUM [Concomitant]
     Dosage: 40 MG, QD
  5. PULMICORT [Concomitant]
     Dosage: UNK, BID
  6. HYDROCODONE BITARTRATE [Concomitant]
     Dosage: UNK, PRN
  7. OXYGEN [Concomitant]
  8. FORTEO [Suspect]
     Dosage: 20 UG, QD
     Route: 065
  9. EFFEXOR XR [Concomitant]
     Dosage: UNK UNK, QD
  10. POTASSIUM [Concomitant]
     Dosage: 20 MG, UNK
  11. VITAMIN D [Concomitant]
     Dosage: UNK, WEEKLY (1/W)
  12. AMBIEN [Concomitant]
     Dosage: 10 MG, UNK
  13. COUMADIN [Concomitant]
     Dosage: 5 MG, WEEKLY (1/W)
  14. LOPRESSOR [Concomitant]
     Dosage: 75 MG, UNK
  15. CRESTOR [Concomitant]
     Dosage: UNK, QD
  16. METROCREAM [Concomitant]
     Indication: RASH
  17. XOPENEX [Concomitant]
     Indication: DYSPNOEA
  18. FORTEO [Suspect]
     Indication: OSTEOPOROSIS
     Dosage: 20 UG, QD
     Route: 065
     Dates: start: 20110101
  19. PREDNISONE TAB [Concomitant]
     Dosage: 12.5 MG, UNK
  20. XANAX [Concomitant]
     Dosage: 25 MG, UNK
  21. SPIRIVA [Concomitant]
     Dosage: UNK, QD
  22. NITROGLYCERIN SPRAY [Concomitant]

REACTIONS (14)
  - COMA [None]
  - CARDIAC FAILURE [None]
  - INJECTION SITE HAEMATOMA [None]
  - CHRONIC OBSTRUCTIVE PULMONARY DISEASE [None]
  - LOSS OF CONSCIOUSNESS [None]
  - OEDEMA PERIPHERAL [None]
  - FALL [None]
  - ANKLE FRACTURE [None]
  - BONE PAIN [None]
  - MUSCLE SPASMS [None]
  - NAUSEA [None]
  - CORONARY ARTERY DISEASE [None]
  - PAIN [None]
  - VISUAL IMPAIRMENT [None]
